FAERS Safety Report 9638150 (Version 1)
Quarter: 2013Q4

REPORT INFORMATION
  Report Type: Spontaneous
  Country: US (occurrence: US)
  Receive Date: 20131022
  Receipt Date: 20131022
  Transmission Date: 20140711
  Serious: No
  Sender: FDA-Public Use
  Company Number: US-PFIZER INC-2013299229

PATIENT
  Age: 65 Year
  Sex: Female
  Weight: 65 kg

DRUGS (1)
  1. PREMARIN [Suspect]
     Indication: VULVOVAGINAL DISORDER
     Dosage: 1 G, 3X/WEEK
     Route: 067
     Dates: start: 201309

REACTIONS (2)
  - Platelet count increased [Unknown]
  - White blood cell count increased [Unknown]
